FAERS Safety Report 4351213-9 (Version None)
Quarter: 2004Q2

REPORT INFORMATION
  Report Type: 
  Country: None (occurrence: None)
  Receive Date: 20040430
  Receipt Date: 20040430
  Transmission Date: 20050107
  Serious: Yes (Death)
  Sender: FDA-Public Use
  Company Number: None

PATIENT
  Age: 75 Year
  Sex: Male
  Weight: 148.5 kg

DRUGS (1)
  1. GAMIMUNE N 10% [Suspect]
     Indication: BLOOD IMMUNOGLOBULIN G DECREASED
     Dosage: 30 GM IV
     Route: 042
     Dates: start: 20040420

REACTIONS (2)
  - CEREBROVASCULAR ACCIDENT [None]
  - MYOCARDIAL INFARCTION [None]
